FAERS Safety Report 23393263 (Version 1)
Quarter: 2024Q1

REPORT INFORMATION
  Report Type: Spontaneous
  Country: IR (occurrence: IR)
  Receive Date: 20240111
  Receipt Date: 20240111
  Transmission Date: 20240410
  Serious: Yes (Death, Hospitalization, Other)
  Sender: FDA-Public Use
  Company Number: IR-AMGEN-IRNSP2024004687

PATIENT

DRUGS (13)
  1. FILGRASTIM [Suspect]
     Active Substance: FILGRASTIM
     Indication: Neutropenia
     Dosage: 7.5 MILLIGRAM/KILOGRAM
     Route: 065
  2. DOCETAXEL [Concomitant]
     Active Substance: DOCETAXEL\DOCETAXEL ANHYDROUS
     Dosage: 75 MILLIGRAM/SQ. METER, DAY 1
  3. DOCETAXEL [Concomitant]
     Active Substance: DOCETAXEL\DOCETAXEL ANHYDROUS
     Dosage: 50 MILLIGRAM/SQ. METER, DAY 1
  4. CISPLATIN [Concomitant]
     Active Substance: CISPLATIN
     Dosage: 75 MILLIGRAM/SQ. METER, DAY 1
  5. CISPLATIN [Concomitant]
     Active Substance: CISPLATIN
     Dosage: 60 MILLIGRAM/SQ. METER, DAY 1
  6. FLUOROURACIL [Concomitant]
     Active Substance: FLUOROURACIL
     Dosage: 750 MILLIGRAM/SQ. METER, QD (1-5 DAYS)
  7. FLUOROURACIL [Concomitant]
     Active Substance: FLUOROURACIL
     Dosage: 200 MILLIGRAM/SQ. METER, QD, THROUGH CONTINUOUS INFUSION, DAY 1-21
  8. FLUOROURACIL [Concomitant]
     Active Substance: FLUOROURACIL
     Dosage: 400 MILLIGRAM/SQ. METER, DAY 1, (1200 MG/M SQUARE THROUGH CONTINUOUS INFUSION OVER 24 H, DAYS 1-2)
  9. FLUOROURACIL [Concomitant]
     Active Substance: FLUOROURACIL
     Dosage: 2600 MILLIGRAM/SQ. METER (CONTINUOUS INFUSION OVER 24 H, DAY 1)
  10. EPIRUBICIN [Concomitant]
     Active Substance: EPIRUBICIN
     Dosage: 50 MILLIGRAM/SQ. METER, DAY 1
  11. OXALIPLATIN [Concomitant]
     Active Substance: OXALIPLATIN
     Dosage: 85 MILLIGRAM/SQ. METER, DAY 1
  12. LEUCOVORIN [Concomitant]
     Active Substance: LEUCOVORIN\LEUCOVORIN CALCIUM
     Dosage: 400 MILLIGRAM/SQ. METER, DAY 1
  13. LEUCOVORIN [Concomitant]
     Active Substance: LEUCOVORIN\LEUCOVORIN CALCIUM
     Dosage: 200 MILLIGRAM/SQ. METER, DAY 1

REACTIONS (4)
  - Adenocarcinoma gastric [Fatal]
  - Unevaluable event [Unknown]
  - Neutropenia [Unknown]
  - Mucosal inflammation [Unknown]
